FAERS Safety Report 24613679 (Version 3)
Quarter: 2025Q3

REPORT INFORMATION
  Report Type: Spontaneous
  Country: BR (occurrence: BR)
  Receive Date: 20241113
  Receipt Date: 20250803
  Transmission Date: 20251021
  Serious: Yes (Hospitalization, Other)
  Sender: ALEXION PHARMACEUTICALS
  Company Number: BR-ASTRAZENECA-202410SAM007319BR

PATIENT
  Age: 79 Year
  Sex: Female
  Weight: 65.2 kg

DRUGS (10)
  1. SODIUM ZIRCONIUM CYCLOSILICATE [Suspect]
     Active Substance: SODIUM ZIRCONIUM CYCLOSILICATE
  2. IRON [Concomitant]
     Active Substance: IRON
  3. ERYTHROPOIETIN [Concomitant]
     Active Substance: ERYTHROPOIETIN
  4. PARICALCITOL [Concomitant]
     Active Substance: PARICALCITOL
  5. AMLODIPINE [Concomitant]
     Active Substance: AMLODIPINE BESYLATE
  6. SIMVASTATIN [Concomitant]
     Active Substance: SIMVASTATIN
  7. ATENOLOL [Concomitant]
     Active Substance: ATENOLOL
  8. LEVOTHYROXINE [Concomitant]
     Active Substance: LEVOTHYROXINE
  9. GABAPENTIN [Concomitant]
     Active Substance: GABAPENTIN
     Route: 065
  10. TRAMADOL [Concomitant]
     Active Substance: TRAMADOL
     Route: 065

REACTIONS (3)
  - Acute myocardial infarction [Recovered/Resolved]
  - Malaise [Recovered/Resolved]
  - Coronary artery disease [Unknown]

NARRATIVE: CASE EVENT DATE: 20241006
